FAERS Safety Report 15011139 (Version 3)
Quarter: 2018Q3

REPORT INFORMATION
  Report Type: Spontaneous
  Country: US (occurrence: US)
  Receive Date: 20180614
  Receipt Date: 20180802
  Transmission Date: 20181010
  Serious: Yes (Death, Hospitalization)
  Sender: FDA-Public Use
  Company Number: US-JNJFOC-20180616280

PATIENT
  Age: 86 Year
  Sex: Male
  Weight: 58.5 kg

DRUGS (5)
  1. XARELTO [Suspect]
     Active Substance: RIVAROXABAN
     Indication: THROMBOSIS PROPHYLAXIS
     Dosage: 15 MG X 2 THEN 20 MG THEN 15??MG
     Route: 048
     Dates: start: 201610, end: 20170215
  2. XARELTO [Suspect]
     Active Substance: RIVAROXABAN
     Indication: CEREBROVASCULAR ACCIDENT PROPHYLAXIS
     Dosage: 15 MG X 2 THEN 20 MG THEN 15??MG
     Route: 048
     Dates: start: 201610, end: 20170215
  3. XARELTO [Suspect]
     Active Substance: RIVAROXABAN
     Indication: THROMBOSIS PROPHYLAXIS
     Dosage: 15 MG X 2 THEN 20 MG THEN 15??MG
     Route: 048
     Dates: start: 201610, end: 20170215
  4. XARELTO [Suspect]
     Active Substance: RIVAROXABAN
     Indication: THROMBOSIS PROPHYLAXIS
     Dosage: 15 MG X 2 THEN 20 MG THEN 15??MG
     Route: 048
     Dates: start: 201610, end: 20170215
  5. XARELTO [Suspect]
     Active Substance: RIVAROXABAN
     Indication: ATRIAL FIBRILLATION
     Dosage: 15 MG X 2 THEN 20 MG THEN 15??MG
     Route: 048
     Dates: start: 201610, end: 20170215

REACTIONS (2)
  - Acute kidney injury [Unknown]
  - Respiratory failure [Fatal]

NARRATIVE: CASE EVENT DATE: 20161029
